FAERS Safety Report 9819665 (Version 3)
Quarter: 2014Q1

REPORT INFORMATION
  Report Type: Spontaneous
  Country: US (occurrence: US)
  Receive Date: 20140115
  Receipt Date: 20140123
  Transmission Date: 20141002
  Serious: Yes (Hospitalization, Other)
  Sender: FDA-Public Use
  Company Number: US-BMSGILMSD-2013-0081579

PATIENT
  Age: 29 Year
  Sex: Female

DRUGS (2)
  1. EFAVIRENZ/EMTRICITABINE/TENOFOVIR DF [Suspect]
     Indication: HIV INFECTION
     Dosage: 1 DF, QD
     Route: 048
     Dates: start: 201212
  2. ACYCLOVIR /00587301/ [Suspect]
     Indication: HIV INFECTION

REACTIONS (2)
  - Deafness [Unknown]
  - Immune reconstitution inflammatory syndrome [Recovered/Resolved]
